FAERS Safety Report 7536172-X (Version None)
Quarter: 2011Q2

REPORT INFORMATION
  Report Type: 
  Country: None (occurrence: None)
  Receive Date: 20110608
  Receipt Date: 20110608
  Transmission Date: 20111010
  Serious: Yes (Hospitalization)
  Sender: FDA-Public Use
  Company Number: None

PATIENT
  Age: 47 Year
  Sex: Male
  Weight: 54.4316 kg

DRUGS (1)
  1. LAMOTRIGINE [Suspect]
     Indication: CONVULSION
     Dosage: 50 MG 3 TIMES A DAY OTHER
     Route: 050
     Dates: start: 20110310, end: 20110608

REACTIONS (5)
  - RASH [None]
  - DIZZINESS [None]
  - DISORIENTATION [None]
  - CONVULSION [None]
  - EYE DISORDER [None]
